FAERS Safety Report 4518734-7 (Version None)
Quarter: 2004Q4

REPORT INFORMATION
  Report Type: 
  Country: None (occurrence: None)
  Receive Date: 20041201
  Receipt Date: 20030813
  Transmission Date: 20050328
  Serious: Yes (Hospitalization)
  Sender: FDA-Public Use
  Company Number: 03USA0025

PATIENT
  Sex: Female
  Weight: 92.9874 kg

DRUGS (4)
  1. GLIADEL [Suspect]
     Indication: OLIGODENDROGLIOMA
     Dosage: 6 WAFERS, IMPLANT
     Dates: start: 20010101
  2. SYNTHROID [Concomitant]
  3. PREMPRO 14/14 [Concomitant]
  4. EFFEXOR [Concomitant]

REACTIONS (1)
  - CEREBRAL CYST [None]
